FAERS Safety Report 13219457 (Version 1)
Quarter: 2017Q1

REPORT INFORMATION
  Report Type: Other
  Country: US (occurrence: US)
  Receive Date: 20170210
  Receipt Date: 20170210
  Transmission Date: 20170428
  Serious: No
  Sender: FDA-Public Use
  Company Number: US-ACORDA-ACO_127538_2016

PATIENT
  Age: 54 Year
  Sex: Male

DRUGS (1)
  1. AMPYRA [Suspect]
     Active Substance: DALFAMPRIDINE
     Indication: MULTIPLE SCLEROSIS
     Dosage: 10 MG, BID
     Route: 048
     Dates: start: 201307

REACTIONS (4)
  - B-lymphocyte count decreased [Unknown]
  - Lymphocyte percentage increased [Unknown]
  - Lymphocyte percentage decreased [Unknown]
  - CD4 lymphocytes increased [Unknown]

NARRATIVE: CASE EVENT DATE: 20160803
